FAERS Safety Report 5240392-7 (Version None)
Quarter: 2007Q1

REPORT INFORMATION
  Report Type: 
  Country: None (occurrence: None)
  Receive Date: 20061208
  Receipt Date: 20050719
  Transmission Date: 20070707
  Serious: Yes (Other)
  Sender: FDA-Public Use
  Company Number: 2005UW10705

PATIENT
  Age: 73 Year
  Sex: Female
  Weight: 76.203 kg

DRUGS (6)
  1. CRESTOR [Suspect]
     Indication: BLOOD CHOLESTEROL INCREASED
     Dosage: 20 MG QD PO
     Route: 048
     Dates: start: 20050717
  2. FOLIC ACID [Concomitant]
  3. THYROID TAB [Concomitant]
  4. ASPIRIN [Concomitant]
  5. MULTI-VITAMIN [Concomitant]
  6. DARVOCET-N 100 [Concomitant]

REACTIONS (2)
  - COLD SWEAT [None]
  - NAUSEA [None]
